FAERS Safety Report 13454392 (Version 2)
Quarter: 2017Q3

REPORT INFORMATION
  Report Type: Spontaneous
  Country: US (occurrence: US)
  Receive Date: 20170418
  Receipt Date: 20170921
  Transmission Date: 20171127
  Serious: Yes (Death, Disabling)
  Sender: FDA-Public Use
  Company Number: US-SA-2017SA068255

PATIENT
  Age: 77 Year
  Sex: Female

DRUGS (1)
  1. LOVENOX [Suspect]
     Active Substance: ENOXAPARIN SODIUM
     Indication: DEEP VEIN THROMBOSIS
     Route: 065

REACTIONS (7)
  - Aphasia [Unknown]
  - Feeding disorder [Unknown]
  - Death [Fatal]
  - Condition aggravated [Unknown]
  - Cerebrovascular accident [Unknown]
  - Paralysis [Unknown]
  - Dysarthria [Unknown]
